FAERS Safety Report 10161704 (Version 1)
Quarter: 2014Q2

REPORT INFORMATION
  Report Type: Spontaneous
  Country: US (occurrence: None)
  Receive Date: 20140508
  Receipt Date: 20140508
  Transmission Date: 20141212
  Serious: No
  Sender: FDA-Public Use
  Company Number: None

PATIENT
  Age: 80 Year
  Sex: Female
  Weight: 68.04 kg

DRUGS (26)
  1. LIDOCAINE [Suspect]
     Indication: RHEUMATOID ARTHRITIS
     Dosage: 5%?3 PATCHES?BEDTIME?ON THE SKIN?2 DAYS ONLY
     Route: 061
     Dates: start: 20131104
  2. METHOTREXATE [Concomitant]
  3. FOLIC ACID [Concomitant]
  4. ASPIRIN [Concomitant]
  5. CALCITROL [Concomitant]
  6. CORDURA [Concomitant]
  7. NORVASC [Concomitant]
  8. SYNTHROID [Concomitant]
  9. LASIK [Concomitant]
  10. FERROUS SULFATE [Concomitant]
  11. EVOA (EYE VITAMIN) [Concomitant]
  12. BUPROPION HCL [Concomitant]
  13. ATORVASTATIN [Concomitant]
  14. ZETIA [Concomitant]
  15. LITHIUM [Concomitant]
  16. METOPROLOL [Concomitant]
  17. ALLOPURINOL [Concomitant]
  18. CORDURA [Concomitant]
  19. TYENOL 3 [Concomitant]
  20. LIDODERM PATCH [Concomitant]
  21. FIBER SUPPLEMENT [Concomitant]
  22. MIRALAX [Concomitant]
  23. ORENCIA [Concomitant]
  24. POLYMYXIN B-TEMP [Concomitant]
  25. PENNSALD OIL [Concomitant]
  26. VITAMIN D [Concomitant]

REACTIONS (2)
  - Drug ineffective [None]
  - Product substitution issue [None]
